FAERS Safety Report 4636097-3 (Version None)
Quarter: 2005Q2

REPORT INFORMATION
  Report Type: 
  Country: None (occurrence: None)
  Receive Date: 20050325
  Receipt Date: 20041217
  Transmission Date: 20051028
  Serious: No
  Sender: FDA-Public Use
  Company Number: USA040772236

PATIENT
  Age: 66 Year
  Sex: Female
  Weight: 57 kg

DRUGS (6)
  1. FORTEO [Suspect]
     Indication: OSTEOPOROSIS
     Dosage: 20 UG/1 DAY
     Dates: start: 20040617
  2. VIOXX [Concomitant]
  3. PREMARIN [Concomitant]
  4. XALATAN [Concomitant]
  5. NEXIUM [Concomitant]
  6. CALCIUM WITH VITAMIN D [Concomitant]

REACTIONS (8)
  - BACK PAIN [None]
  - FIBROMYALGIA [None]
  - HYPERTENSION [None]
  - JOINT SPRAIN [None]
  - MUSCLE SPASMS [None]
  - PAIN [None]
  - ROAD TRAFFIC ACCIDENT [None]
  - WHIPLASH INJURY [None]
